FAERS Safety Report 18223176 (Version 1)
Quarter: 2020Q3

REPORT INFORMATION
  Report Type: Spontaneous
  Country: US (occurrence: US)
  Receive Date: 20200902
  Receipt Date: 20200902
  Transmission Date: 20201103
  Serious: Yes (Hospitalization)
  Sender: FDA-Public Use
  Company Number: US-BAUSCH-BL-2020-024896

PATIENT
  Age: 89 Year
  Sex: Female

DRUGS (1)
  1. ARESTIN [Suspect]
     Active Substance: MINOCYCLINE HYDROCHLORIDE
     Indication: DENTAL CARE
     Dosage: RECEIVED MEDICATION IN TWO DIFFERENT SITES ON TOOTH NUMBER 3 WITH IN THE LAST 3 WEEKS
     Route: 050
     Dates: start: 202008

REACTIONS (4)
  - Drug hypersensitivity [Unknown]
  - Somnolence [Unknown]
  - Blood pressure increased [Unknown]
  - Asthenia [Unknown]

NARRATIVE: CASE EVENT DATE: 202008
